FAERS Safety Report 6626100-3 (Version None)
Quarter: 2010Q1

REPORT INFORMATION
  Report Type: 
  Country: None (occurrence: None)
  Receive Date: 20100310
  Receipt Date: 20100303
  Transmission Date: 20100710
  Serious: Yes (Hospitalization, Disabling)
  Sender: FDA-Public Use
  Company Number: B0585123A

PATIENT
  Sex: Male
  Weight: 79 kg

DRUGS (5)
  1. LAPATINIB [Suspect]
     Route: 048
     Dates: start: 20090114, end: 20090623
  2. CISPLATIN [Suspect]
     Route: 042
     Dates: start: 20090115, end: 20090609
  3. GEMCITABINE [Suspect]
     Route: 042
     Dates: start: 20090114, end: 20090608
  4. PARACETAMOL [Concomitant]
     Indication: PAIN
     Dosage: 1G FOUR TIMES PER DAY
     Route: 048
  5. MORPHINE [Concomitant]
     Indication: PAIN
     Dosage: 10MG AS REQUIRED
     Route: 048
     Dates: start: 20090428

REACTIONS (7)
  - BLADDER PAIN [None]
  - DIZZINESS [None]
  - HYDRONEPHROSIS [None]
  - NEUROTOXICITY [None]
  - OTOTOXICITY [None]
  - RENAL PAIN [None]
  - URETERIC OBSTRUCTION [None]
